FAERS Safety Report 11514015 (Version 4)
Quarter: 2015Q4

REPORT INFORMATION
  Report Type: Spontaneous
  Country: US (occurrence: US)
  Receive Date: 20150916
  Receipt Date: 20151126
  Transmission Date: 20160304
  Serious: No
  Sender: FDA-Public Use
  Company Number: US-PFIZER INC-2015308986

PATIENT
  Sex: Female

DRUGS (2)
  1. ALPRAZOLAM. [Suspect]
     Active Substance: ALPRAZOLAM
     Indication: ANXIETY
  2. ALPRAZOLAM. [Suspect]
     Active Substance: ALPRAZOLAM
     Indication: PANIC ATTACK
     Dosage: 1MG TABLET, 1-2 TABLETS A DAY AS NEEDED

REACTIONS (1)
  - Drug ineffective [Unknown]
